FAERS Safety Report 7013740-5 (Version None)
Quarter: 2010Q3

REPORT INFORMATION
  Report Type: 
  Country: None (occurrence: None)
  Receive Date: 20100924
  Receipt Date: 20100910
  Transmission Date: 20110219
  Serious: No
  Sender: FDA-Public Use
  Company Number: US-PFIZER INC-2009263520

PATIENT
  Sex: Male

DRUGS (7)
  1. ALPRAZOLAM [Suspect]
     Indication: ANXIETY
     Dosage: 0.5 MG,  FIVE TO SIX TIMES A DAILY
     Route: 048
     Dates: end: 20090101
  2. ALPRAZOLAM [Suspect]
     Indication: PANIC ATTACK
  3. ALPRAZOLAM [Suspect]
     Dosage: 0.5 MG, 5-8 TIMES DAILY
     Route: 048
     Dates: start: 20090101
  4. ALPRAZOLAM [Suspect]
  5. ALPRAZOLAM [Suspect]
     Dosage: UNK
  6. ALPRAZOLAM [Suspect]
  7. LEXAPRO [Concomitant]
     Indication: DEPRESSION
     Dosage: 30 MG, 1X/DAY
     Route: 048

REACTIONS (7)
  - ABDOMINAL PAIN UPPER [None]
  - ANXIETY [None]
  - DYSPEPSIA [None]
  - GASTROOESOPHAGEAL REFLUX DISEASE [None]
  - HEADACHE [None]
  - LACTOSE INTOLERANCE [None]
  - URTICARIA [None]
